FAERS Safety Report 5492818-1 (Version None)
Quarter: 2007Q4

REPORT INFORMATION
  Report Type: 
  Country: None (occurrence: None)
  Receive Date: 20071019
  Receipt Date: 20071003
  Transmission Date: 20080405
  Serious: Yes (Life-Threatening, Hospitalization, Other)
  Sender: FDA-Public Use
  Company Number: DSA_26619_2005

PATIENT
  Age: 79 Year
  Sex: Female
  Weight: 34 kg

DRUGS (3)
  1. RENIVACE (RENIVACE - ENALAPRIL MALEATE) [Suspect]
     Indication: HYPOTENSION
     Dosage: 10 MG QD ORAL
     Route: 048
     Dates: start: 20041217, end: 20050105
  2. RENIVACE (RENIVACE - ENALAPRIL MALEATE) [Suspect]
     Indication: SCLERODERMA RENAL CRISIS
     Dosage: 10 MG QD ORAL
     Route: 048
     Dates: start: 20041217, end: 20050105
  3. TORSEMIDE [Concomitant]

REACTIONS (17)
  - ANTINUCLEAR ANTIBODY POSITIVE [None]
  - CARDIAC MURMUR [None]
  - CARDIOMEGALY [None]
  - CATARACT [None]
  - CONDITION AGGRAVATED [None]
  - GASTROINTESTINAL HAEMORRHAGE [None]
  - HAEMATOCRIT DECREASED [None]
  - HAEMATURIA [None]
  - HAEMODIALYSIS [None]
  - HAEMOGLOBIN DECREASED [None]
  - HYPERTENSION [None]
  - MELAENA [None]
  - PLATELET COUNT DECREASED [None]
  - PLEURAL EFFUSION [None]
  - PULMONARY FIBROSIS [None]
  - RENAL ARTERY STENOSIS [None]
  - RENAL FAILURE ACUTE [None]
